FAERS Safety Report 6445694-4 (Version None)
Quarter: 2009Q4

REPORT INFORMATION
  Report Type: 
  Country: None (occurrence: None)
  Receive Date: 20091118
  Receipt Date: 20091118
  Transmission Date: 20100525
  Serious: Yes (Hospitalization, Disabling)
  Sender: FDA-Public Use
  Company Number: None

PATIENT
  Age: 2 Day
  Sex: Male
  Weight: 4.037 kg

DRUGS (2)
  1. GENTAMICIN [Suspect]
     Indication: OPHTHALMIA NEONATORUM
     Dosage: ONCE OPHTHALMIC ONE TIME APPLICATION
     Route: 047
     Dates: start: 20091109, end: 20091109
  2. GENTAMICIN [Suspect]
     Indication: PROPHYLAXIS
     Dosage: ONCE OPHTHALMIC ONE TIME APPLICATION
     Route: 047
     Dates: start: 20091109, end: 20091109

REACTIONS (3)
  - APPLICATION SITE SCAB [None]
  - APPLICATION SITE SWELLING [None]
  - OCULAR HYPERAEMIA [None]
